FAERS Safety Report 25129673 (Version 2)
Quarter: 2025Q2

REPORT INFORMATION
  Report Type: Spontaneous
  Country: US (occurrence: US)
  Receive Date: 20250327
  Receipt Date: 20250408
  Transmission Date: 20250717
  Serious: Yes (Death, Life-Threatening, Other)
  Sender: PFIZER
  Company Number: US-PFIZER INC-PV202500036118

PATIENT
  Age: 12 Month

DRUGS (1)
  1. FENTANYL CITRATE [Suspect]
     Active Substance: FENTANYL CITRATE
     Indication: Pain

REACTIONS (2)
  - Neurotoxicity [Fatal]
  - Off label use [Unknown]
